FAERS Safety Report 10168937 (Version 1)
Quarter: 2014Q2

REPORT INFORMATION
  Report Type: Spontaneous
  Country: US (occurrence: US)
  Receive Date: 20140513
  Receipt Date: 20140513
  Transmission Date: 20141212
  Serious: Yes (Other)
  Sender: FDA-Public Use
  Company Number: US-BAYER-2014-067926

PATIENT
  Sex: Female

DRUGS (1)
  1. OCELLA [Suspect]

REACTIONS (1)
  - Coeliac disease [None]
